FAERS Safety Report 6518918-2 (Version None)
Quarter: 2009Q4

REPORT INFORMATION
  Report Type: 
  Country: None (occurrence: None)
  Receive Date: 20091228
  Receipt Date: 20091218
  Transmission Date: 20100525
  Serious: Yes (Hospitalization)
  Sender: FDA-Public Use
  Company Number: JP-BAYER-200912830BYL

PATIENT
  Age: 41 Year
  Sex: Male
  Weight: 85 kg

DRUGS (4)
  1. NEXAVAR [Suspect]
     Indication: RENAL CELL CARCINOMA
     Dosage: TOTAL DAILY DOSE: 800 MG  UNIT DOSE: 200 MG
     Route: 048
     Dates: start: 20090525, end: 20090709
  2. SAHNE [Concomitant]
     Indication: PROPHYLAXIS
     Route: 061
     Dates: start: 20090522
  3. WHITE PETROLATUM [Concomitant]
     Indication: PROPHYLAXIS
     Route: 061
     Dates: start: 20090522
  4. TAGAMET [Concomitant]
     Route: 048

REACTIONS (5)
  - ALOPECIA [None]
  - C-REACTIVE PROTEIN INCREASED [None]
  - HYPERTENSION [None]
  - MESENTERITIS [None]
  - PALMAR-PLANTAR ERYTHRODYSAESTHESIA SYNDROME [None]
